FAERS Safety Report 6881521-9 (Version None)
Quarter: 2010Q3

REPORT INFORMATION
  Report Type: 
  Country: None (occurrence: None)
  Receive Date: 20100729
  Receipt Date: 20100726
  Transmission Date: 20110219
  Serious: Yes (Hospitalization)
  Sender: FDA-Public Use
  Company Number: DE-BIOGENIDEC-2010BI019331

PATIENT
  Age: 29 Year
  Sex: Female
  Weight: 74 kg

DRUGS (2)
  1. AVONEX [Suspect]
     Indication: RELAPSING-REMITTING MULTIPLE SCLEROSIS
     Route: 030
     Dates: start: 20080101, end: 20100101
  2. AVONEX [Suspect]
     Route: 030
     Dates: start: 20100401

REACTIONS (1)
  - HEPATITIS C [None]
